FAERS Safety Report 5033501-6 (Version None)
Quarter: 2006Q2

REPORT INFORMATION
  Report Type: 
  Country: None (occurrence: None)
  Receive Date: 20060623
  Receipt Date: 20060613
  Transmission Date: 20061013
  Serious: Yes (Life-Threatening)
  Sender: FDA-Public Use
  Company Number: ES-BRISTOL-MYERS SQUIBB COMPANY-13410196

PATIENT
  Sex: Female

DRUGS (3)
  1. MAXIPIME [Suspect]
     Route: 042
  2. CEFTAZIDIME [Suspect]
  3. CYCLOSPORINE [Concomitant]

REACTIONS (2)
  - COMA [None]
  - ENCEPHALITIS [None]
